FAERS Safety Report 4823668-4 (Version None)
Quarter: 2005Q4

REPORT INFORMATION
  Report Type: 
  Country: None (occurrence: None)
  Receive Date: 20051109
  Receipt Date: 20051102
  Transmission Date: 20060501
  Serious: Yes (Other)
  Sender: FDA-Public Use
  Company Number: DE-GLAXOSMITHKLINE-D0047884A

PATIENT
  Age: 65 Year
  Sex: Female
  Weight: 95 kg

DRUGS (8)
  1. ARIXTRA [Suspect]
     Indication: KNEE ARTHROPLASTY
     Dosage: 1INJ PER DAY
     Route: 058
     Dates: start: 20050921, end: 20050927
  2. CORANGIN [Concomitant]
     Indication: HYPERTENSION
     Dosage: 20U IN THE MORNING
     Route: 048
  3. RAMIPRIL [Concomitant]
     Indication: HYPERTENSION
     Dosage: 1U IN THE MORNING
     Route: 048
  4. BISOPROLOL [Concomitant]
     Indication: HYPERTENSION
     Dosage: 1U IN THE MORNING
     Route: 048
  5. PANTOZOL [Concomitant]
     Indication: PROPHYLAXIS
     Dosage: 1U AT NIGHT
     Route: 048
  6. PENTASA [Concomitant]
     Indication: COLITIS
     Dosage: 1U IN THE MORNING
     Route: 048
  7. TRAMAL LONG [Concomitant]
     Indication: PAIN
     Dosage: 1U IN THE MORNING
     Route: 048
  8. MCP [Concomitant]
     Indication: DYSPEPSIA
     Dosage: 20U THREE TIMES PER DAY
     Route: 048

REACTIONS (3)
  - DRUG INEFFECTIVE [None]
  - PAIN IN EXTREMITY [None]
  - VENOUS THROMBOSIS [None]
